FAERS Safety Report 8444132-X (Version None)
Quarter: 2012Q2

REPORT INFORMATION
  Report Type: 
  Country: None (occurrence: None)
  Receive Date: 20120618
  Receipt Date: 20120608
  Transmission Date: 20120825
  Serious: Yes (Hospitalization, Other)
  Sender: FDA-Public Use
  Company Number: US-SHIRE-ALL1-2012-02896

PATIENT
  Sex: Male
  Weight: 52.2 kg

DRUGS (1)
  1. VPRIV [Suspect]
     Indication: GAUCHER'S DISEASE
     Dosage: 3200 IU, 1X/2WKS
     Route: 041
     Dates: start: 20110124

REACTIONS (2)
  - ABSCESS [None]
  - APPENDICITIS [None]
